FAERS Safety Report 25250942 (Version 2)
Quarter: 2025Q2

REPORT INFORMATION
  Report Type: Report from Study
  Country: MX (occurrence: MX)
  Receive Date: 20250429
  Receipt Date: 20250506
  Transmission Date: 20250716
  Serious: Yes (Hospitalization, Other)
  Sender: ALEXION PHARMACEUTICALS
  Company Number: MX-AstraZeneca-CH-00857378A

PATIENT
  Age: 75 Year
  Weight: 100 kg

DRUGS (13)
  1. DAPAGLIFLOZIN\METFORMIN HYDROCHLORIDE [Suspect]
     Active Substance: DAPAGLIFLOZIN\METFORMIN HYDROCHLORIDE
     Indication: Type 2 diabetes mellitus
     Dosage: 1 DOSAGE FORM, QD
  2. FUROSEMIDE [Concomitant]
     Active Substance: FUROSEMIDE
     Indication: Peripheral swelling
     Dosage: 20 MILLIGRAM, QD
  3. APIXABAN [Concomitant]
     Active Substance: APIXABAN
     Dosage: 5 MILLIGRAM, Q12H
  4. ENTRESTO [Concomitant]
     Active Substance: SACUBITRIL\VALSARTAN
     Indication: Peripheral swelling
     Dosage: 25 MILLIGRAM, Q12H
  5. Valvulan [Concomitant]
     Indication: Prophylaxis
     Dosage: 0.25 MILLIGRAM, QOD
  6. CORDARONE [Concomitant]
     Active Substance: AMIODARONE HYDROCHLORIDE
     Dosage: 0.5 DOSAGE FORM, QD
  7. Senosidos AB [Concomitant]
     Dosage: 1 DOSAGE FORM, QD
  8. FINERENONE [Concomitant]
     Active Substance: FINERENONE
     Dosage: 10 MILLIGRAM, QD
  9. BECLOMETHASONE DIPROPIONATE\FORMOTEROL FUMARATE\GLYCOPYRROLATE [Concomitant]
     Active Substance: BECLOMETHASONE DIPROPIONATE\FORMOTEROL FUMARATE\GLYCOPYRROLATE
     Indication: Chronic obstructive pulmonary disease
     Dosage: 2 DOSAGE FORM, Q12H
  10. BECLOMETHASONE DIPROPIONATE\FORMOTEROL FUMARATE\GLYCOPYRROLATE [Concomitant]
     Active Substance: BECLOMETHASONE DIPROPIONATE\FORMOTEROL FUMARATE\GLYCOPYRROLATE
     Indication: Respiratory arrest
  11. BROMAZEPAM [Concomitant]
     Active Substance: BROMAZEPAM
     Indication: Sleep apnoea syndrome
     Dosage: 3 MILLIGRAM, QD
  12. ALBUTEROL [Concomitant]
     Active Substance: ALBUTEROL
     Indication: Chronic obstructive pulmonary disease
     Route: 065
  13. SERETIDE [Concomitant]
     Active Substance: FLUTICASONE PROPIONATE\SALMETEROL XINAFOATE
     Indication: Chronic obstructive pulmonary disease
     Route: 065

REACTIONS (19)
  - Cardio-respiratory arrest [Recovered/Resolved with Sequelae]
  - Sleep apnoea syndrome [Unknown]
  - Pneumonia [Recovered/Resolved]
  - Extra dose administered [Unknown]
  - Insomnia [Unknown]
  - Body height decreased [Unknown]
  - Blood glucose abnormal [Recovering/Resolving]
  - Blood glucose decreased [Unknown]
  - Thyroid disorder [Recovering/Resolving]
  - Malaise [Recovering/Resolving]
  - Hyperhidrosis [Not Recovered/Not Resolved]
  - Tinnitus [Not Recovered/Not Resolved]
  - Nervousness [Not Recovered/Not Resolved]
  - Urinary tract infection [Recovered/Resolved]
  - Pain [Not Recovered/Not Resolved]
  - Asthenia [Not Recovered/Not Resolved]
  - Peripheral swelling [Not Recovered/Not Resolved]
  - Cardiac disorder [Not Recovered/Not Resolved]
  - Chronic obstructive pulmonary disease [Not Recovered/Not Resolved]
